FAERS Safety Report 4524647-7 (Version None)
Quarter: 2004Q4

REPORT INFORMATION
  Report Type: 
  Country: None (occurrence: None)
  Receive Date: 20041117
  Receipt Date: 20031002
  Transmission Date: 20050328
  Serious: No
  Sender: FDA-Public Use
  Company Number: C2003-2656.01

PATIENT
  Age: 57 Year
  Sex: Female

DRUGS (5)
  1. CLOZAPINE [Suspect]
     Indication: SCHIZOAFFECTIVE DISORDER
     Dosage: 50MG Q HS, ORAL
     Route: 048
     Dates: end: 20030915
  2. CLOZAPINE [Suspect]
     Indication: SCHIZOAFFECTIVE DISORDER
     Dosage: 200MG BID, ORAL
     Route: 048
     Dates: end: 20030916
  3. OLANZAPINE [Concomitant]
  4. DIVALPROEX SODIUM [Concomitant]
  5. BENZTROPINE MESYLATE [Concomitant]

REACTIONS (1)
  - NEUTROPENIA [None]
